FAERS Safety Report 6420447-1 (Version None)
Quarter: 2009Q4

REPORT INFORMATION
  Report Type: 
  Country: None (occurrence: None)
  Receive Date: 20091029
  Receipt Date: 20091020
  Transmission Date: 20100525
  Serious: Yes (Other)
  Sender: FDA-Public Use
  Company Number: JP-GILEAD-E2B_00000482

PATIENT
  Age: 57 Year
  Sex: Female

DRUGS (2)
  1. HEPSERA [Suspect]
     Indication: HEPATITIS B
     Dosage: 10MG PER DAY
     Route: 065
  2. LAMIVUDINE [Concomitant]
     Indication: HEPATITIS B
     Route: 065

REACTIONS (1)
  - FANCONI SYNDROME [None]
